FAERS Safety Report 9009599 (Version 1)
Quarter: 2013Q1

REPORT INFORMATION
  Report Type: Spontaneous
  Country: IT (occurrence: IT)
  Receive Date: 20130110
  Receipt Date: 20130110
  Transmission Date: 20140127
  Serious: Yes (Disabling)
  Sender: FDA-Public Use
  Company Number: IT-PFIZER INC-2013009383

PATIENT
  Age: 89 Year
  Sex: Male

DRUGS (5)
  1. AMIODAR [Suspect]
     Indication: ARRHYTHMIA
     Dosage: UNK
     Route: 048
     Dates: start: 20110901, end: 20111201
  2. NIFEDIPINE [Concomitant]
  3. INDAPAMIDE [Concomitant]
  4. ASA [Concomitant]
  5. AMARYL [Concomitant]

REACTIONS (3)
  - Asthenia [Not Recovered/Not Resolved]
  - Muscular weakness [Not Recovered/Not Resolved]
  - Gait disturbance [Not Recovered/Not Resolved]
